FAERS Safety Report 7251035 (Version 1)
Quarter: 2020Q3

REPORT INFORMATION
  Report Type: Report from Study
  Country: AR (occurrence: AR)
  Receive Date: 20100121
  Receipt Date: 20100121
  Transmission Date: 20201104
  Serious: Yes (Death)
  Sender: FDA-Public Use
  Company Number: AR-WYE-H13057310

PATIENT
  Age: 54 Year
  Sex: Male
  Weight: 92 kg

DRUGS (4)
  1. CODEINE [Concomitant]
     Active Substance: CODEINE
     Indication: COUGH
     Dosage: 10 MG AS NEEDED
     Route: 048
     Dates: start: 20091120, end: 20100116
  2. PILOCARPINE\TIMOLOL MALEATE [Concomitant]
     Indication: GLAUCOMA
     Route: 001
     Dates: start: 200904, end: 20100116
  3. NEXAVAR [Suspect]
     Active Substance: SORAFENIB
     Indication: RENAL CELL CARCINOMA
     Route: 048
     Dates: start: 20090810
  4. LATANOPROST. [Concomitant]
     Active Substance: LATANOPROST
     Indication: GLAUCOMA
     Route: 001
     Dates: start: 200904, end: 20100116

REACTIONS (1)
  - Sudden death [Fatal]

NARRATIVE: CASE EVENT DATE: 20100116
